FAERS Safety Report 7229897-7 (Version None)
Quarter: 2011Q1

REPORT INFORMATION
  Report Type: 
  Country: None (occurrence: None)
  Receive Date: 20110117
  Receipt Date: 20110113
  Transmission Date: 20110831
  Serious: Yes (Death, Hospitalization)
  Sender: FDA-Public Use
  Company Number: US-MPIJNJ-2011-00013

PATIENT
  Age: 80 Year
  Sex: Male
  Weight: 69.6 kg

DRUGS (2)
  1. VELCADE [Suspect]
     Indication: MANTLE CELL LYMPHOMA
     Dosage: 1.3 MG/M2, CYCLIC
     Route: 040
     Dates: start: 20101220, end: 20101223
  2. LENALIDOMIDE [Suspect]
     Indication: MANTLE CELL LYMPHOMA
     Dosage: 20 MG, CYCLIC
     Route: 048
     Dates: start: 20101220, end: 20101225

REACTIONS (3)
  - MUSCULAR WEAKNESS [None]
  - DYSPHAGIA [None]
  - DISEASE PROGRESSION [None]
